FAERS Safety Report 5995970-4 (Version None)
Quarter: 2008Q4

REPORT INFORMATION
  Report Type: 
  Country: None (occurrence: None)
  Receive Date: 20081212
  Receipt Date: 20081006
  Transmission Date: 20090506
  Serious: No
  Sender: FDA-Public Use
  Company Number: US-ABBOTT-08P-163-0480084-00

PATIENT
  Sex: Female
  Weight: 81.72 kg

DRUGS (4)
  1. HUMIRA [Suspect]
     Indication: CROHN'S DISEASE
     Route: 058
     Dates: start: 20080101
  2. INFLIXIMAB [Suspect]
     Indication: CROHN'S DISEASE
     Dates: start: 20060601, end: 20080601
  3. CIMZIA [Concomitant]
     Indication: CROHN'S DISEASE
     Dates: start: 20080801
  4. LIALDA [Concomitant]
     Indication: ANTIINFLAMMATORY THERAPY

REACTIONS (5)
  - ABDOMINAL PAIN [None]
  - ARTHRALGIA [None]
  - IMPAIRED HEALING [None]
  - MIGRAINE [None]
  - RECTAL HAEMORRHAGE [None]
